FAERS Safety Report 23130052 (Version 1)
Quarter: 2023Q4

REPORT INFORMATION
  Report Type: Spontaneous
  Country: FR (occurrence: FR)
  Receive Date: 20231031
  Receipt Date: 20231031
  Transmission Date: 20240110
  Serious: Yes (Life-Threatening, Other)
  Sender: FDA-Public Use
  Company Number: None

PATIENT

DRUGS (3)
  1. SUBUTEX [Suspect]
     Active Substance: BUPRENORPHINE HYDROCHLORIDE
     Indication: Product used for unknown indication
     Dosage: UNK
     Route: 042
     Dates: start: 2010, end: 202112
  2. SUBUTEX [Suspect]
     Active Substance: BUPRENORPHINE HYDROCHLORIDE
     Dosage: UNK
     Route: 060
     Dates: start: 2010, end: 202112
  3. TOBACCO LEAF [Suspect]
     Active Substance: TOBACCO LEAF
     Indication: Product used for unknown indication
     Dosage: UNK (15 PA)
     Dates: start: 2001

REACTIONS (11)
  - Acute kidney injury [Recovered/Resolved]
  - Pancreatitis acute [Recovering/Resolving]
  - Endocarditis [Recovering/Resolving]
  - Aneurysm [Recovered/Resolved]
  - Splenectomy [Recovered/Resolved]
  - Starvation [Recovering/Resolving]
  - Aneurysm repair [Recovered/Resolved]
  - Transcatheter aortic valve implantation [Recovered/Resolved]
  - Off label use [Recovered/Resolved]
  - Decreased appetite [Recovering/Resolving]
  - Drug abuse [Recovering/Resolving]

NARRATIVE: CASE EVENT DATE: 20211205
